FAERS Safety Report 4803091-9 (Version None)
Quarter: 2005Q4

REPORT INFORMATION
  Report Type: 
  Country: None (occurrence: None)
  Receive Date: 20051017
  Receipt Date: 20051017
  Transmission Date: 20060501
  Serious: Yes (Hospitalization)
  Sender: FDA-Public Use
  Company Number: None

PATIENT
  Age: 52 Year
  Sex: Male

DRUGS (5)
  1. BACTRIM DS [Suspect]
     Indication: ABSCESS
     Dosage: 800/160 PO BID
     Route: 048
     Dates: start: 20050627, end: 20050705
  2. BACTRIM DS [Suspect]
     Indication: CELLULITIS
     Dosage: 800/160 PO BID
     Route: 048
     Dates: start: 20050627, end: 20050705
  3. CLINDAMYCIN [Suspect]
     Indication: ABDOMINAL ABSCESS
     Dosage: 600MG PO QID
     Route: 048
     Dates: start: 20050627, end: 20050705
  4. CLINDAMYCIN [Suspect]
     Indication: ABSCESS
     Dosage: 600MG PO QID
     Route: 048
     Dates: start: 20050627, end: 20050705
  5. SULFAMETHOXAZOLE 800/TRIMETH 160 [Concomitant]

REACTIONS (3)
  - ANGIONEUROTIC OEDEMA [None]
  - DIARRHOEA [None]
  - RASH [None]
